FAERS Safety Report 7435976-1 (Version None)
Quarter: 2011Q2

REPORT INFORMATION
  Report Type: 
  Country: None (occurrence: None)
  Receive Date: 20110418
  Receipt Date: 20110406
  Transmission Date: 20111010
  Serious: Yes (Other)
  Sender: FDA-Public Use
  Company Number: MC201100152

PATIENT
  Sex: Male

DRUGS (4)
  1. ANGIOMAX [Suspect]
     Indication: PERCUTANEOUS CORONARY INTERVENTION
     Dosage: INTRAVENOUS
     Route: 042
     Dates: start: 20110330
  2. CARDENE [Concomitant]
  3. REOPRO [Concomitant]
  4. NITROGLYCERIN [Concomitant]

REACTIONS (2)
  - VASCULAR PROCEDURE COMPLICATION [None]
  - CORONARY ARTERY OCCLUSION [None]
